FAERS Safety Report 5878324-0 (Version None)
Quarter: 2008Q3

REPORT INFORMATION
  Report Type: 
  Country: None (occurrence: None)
  Receive Date: 20080911
  Receipt Date: 20080909
  Transmission Date: 20090109
  Serious: Yes (Death, Hospitalization)
  Sender: FDA-Public Use
  Company Number: GR-ABBOTT-08P-066-0470482-00

PATIENT
  Sex: Male
  Weight: 85 kg

DRUGS (8)
  1. ZEMPLAR [Suspect]
     Indication: HYPERPARATHYROIDISM SECONDARY
     Route: 042
     Dates: start: 20070206, end: 20080817
  2. EPOETIN ALFA [Concomitant]
     Indication: ANAEMIA
     Dosage: 1 AMP/HEMODIALYSIS
     Route: 042
     Dates: start: 20070403, end: 20080817
  3. FOLIC ACID [Concomitant]
     Indication: ANAEMIA
     Route: 048
     Dates: start: 20030701, end: 20080817
  4. ACETYLSALICYLIC ACID SRT [Concomitant]
     Indication: ANTIPLATELET THERAPY
     Route: 048
     Dates: start: 20030701, end: 20080817
  5. PERSAMAR [Concomitant]
     Indication: BLOOD PHOSPHORUS INCREASED
     Dosage: 1 TAB IN MORNING; 2 TABS AT NOON; 2 TABS AT NIGHT
     Route: 048
     Dates: start: 20070201, end: 20080817
  6. ALUCAP CAPS [Concomitant]
     Indication: BLOOD PHOSPHORUS INCREASED
     Dosage: 1 TAB IN MORNING; 2 TABS AT NOON; 2 TABS AT NIGHT
     Route: 048
     Dates: start: 20070201, end: 20080817
  7. TICLOPIDINE HYDROCHLORIDE [Concomitant]
     Indication: ANTIPLATELET THERAPY
     Route: 048
     Dates: start: 20030701, end: 20080817
  8. CINACALCET [Concomitant]
     Indication: HYPERPARATHYROIDISM SECONDARY
     Route: 048
     Dates: start: 20070619, end: 20080812

REACTIONS (5)
  - FLUID RETENTION [None]
  - HYPERKALAEMIA [None]
  - PYREXIA [None]
  - RESPIRATORY TRACT INFECTION [None]
  - SEPTIC SHOCK [None]
